FAERS Safety Report 5565556-4 (Version None)
Quarter: 2007Q4

REPORT INFORMATION
  Report Type: 
  Country: None (occurrence: None)
  Receive Date: 20071218
  Receipt Date: 20050928
  Transmission Date: 20080405
  Serious: Yes (Death, Other)
  Sender: FDA-Public Use
  Company Number: JP-ROCHE-420257

PATIENT
  Age: 61 Year
  Sex: Male

DRUGS (8)
  1. CELLCEPT [Suspect]
     Indication: PROPHYLAXIS AGAINST GRAFT VERSUS HOST DISEASE
     Route: 065
  2. CELLCEPT [Suspect]
     Dosage: REDUCED DOSAGE IN RESPONSE TO EVENTS.
     Route: 065
  3. CYCLOSPORINE [Concomitant]
     Indication: PROPHYLAXIS AGAINST GRAFT VERSUS HOST DISEASE
     Route: 065
  4. METHOTREXATE [Concomitant]
     Indication: PROPHYLAXIS AGAINST GRAFT VERSUS HOST DISEASE
     Dosage: SHORT TERM TREATMENT
  5. PREDNISOLONE [Concomitant]
     Indication: GRAFT VERSUS HOST DISEASE
     Dosage: ADMINISTERED FOR A SHORT PERIOD OF TIME.
  6. FLUDARA [Concomitant]
     Indication: CHEMOTHERAPY
  7. BUSULPHAN [Concomitant]
     Indication: CHEMOTHERAPY
  8. ANTITHYMOCYTE GLOBULIN [Concomitant]
     Indication: CHEMOTHERAPY

REACTIONS (3)
  - CYSTITIS HAEMORRHAGIC [None]
  - CYTOMEGALOVIRUS INFECTION [None]
  - THROMBOTIC MICROANGIOPATHY [None]
